FAERS Safety Report 19506084 (Version 1)
Quarter: 2021Q3

REPORT INFORMATION
  Report Type: Report from Study
  Country: JP (occurrence: JP)
  Receive Date: 20210708
  Receipt Date: 20210708
  Transmission Date: 20211014
  Serious: Yes (Hospitalization)
  Sender: FDA-Public Use
  Company Number: JP-ALS-000318

PATIENT
  Sex: Female

DRUGS (8)
  1. REBAMIPIDE [Suspect]
     Active Substance: REBAMIPIDE
     Indication: SCHIZOPHRENIA
     Dosage: 300MG/D
     Route: 065
  2. MAGNESIUM OXIDE. [Suspect]
     Active Substance: MAGNESIUM OXIDE
     Indication: SCHIZOPHRENIA
     Dosage: 9 G/D
     Route: 065
  3. BROMAZEPAM [Suspect]
     Active Substance: BROMAZEPAM
     Indication: SCHIZOPHRENIA
     Dosage: 15MG/D
     Route: 065
  4. OLANZAPINE. [Suspect]
     Active Substance: OLANZAPINE
     Indication: SCHIZOPHRENIA
     Dosage: 20 MG PER DAY
     Route: 065
  5. QUETIAPINE. [Suspect]
     Active Substance: QUETIAPINE
     Indication: SCHIZOPHRENIA
     Dosage: 600 MG PER DAY
     Route: 065
  6. FLUNITRAZEPAM [Suspect]
     Active Substance: FLUNITRAZEPAM
     Indication: SCHIZOPHRENIA
     Dosage: 4 MG PER DAY
     Route: 065
  7. RHEUM PALMATUM DRY EXTRACT [Suspect]
     Active Substance: HERBALS
     Indication: SCHIZOPHRENIA
     Dosage: 9 G/D
     Route: 065
  8. BROTIZOLAM [Suspect]
     Active Substance: BROTIZOLAM
     Indication: SCHIZOPHRENIA
     Dosage: 0.25 MG PER DAY
     Route: 065

REACTIONS (7)
  - Insomnia [Unknown]
  - Urinary tract infection [Unknown]
  - Acute kidney injury [Unknown]
  - Malignant catatonia [Recovered/Resolved]
  - Loss of consciousness [Unknown]
  - Pneumonia fungal [Unknown]
  - Neuroleptic malignant syndrome [Unknown]
